FAERS Safety Report 6532417-3 (Version None)
Quarter: 2010Q1

REPORT INFORMATION
  Report Type: 
  Country: None (occurrence: None)
  Receive Date: 20100108
  Receipt Date: 20100104
  Transmission Date: 20100710
  Serious: Yes (Other)
  Sender: FDA-Public Use
  Company Number: US-ELI_LILLY_AND_COMPANY-US200911006528

PATIENT
  Sex: Male

DRUGS (9)
  1. BYETTA [Suspect]
     Indication: TYPE 2 DIABETES MELLITUS
     Dosage: 5 UG, 2/D
     Dates: start: 20090519, end: 20090609
  2. BYETTA [Suspect]
     Dosage: 10 UG, 2/D
     Dates: start: 20090609, end: 20091119
  3. ACTOS [Concomitant]
     Indication: TYPE 2 DIABETES MELLITUS
     Dosage: 45 MG, DAILY (1/D)
     Route: 048
     Dates: start: 20090519, end: 20090709
  4. ACTOS [Concomitant]
     Dosage: 15 MG, DAILY (1/D)
     Route: 048
     Dates: start: 20090709, end: 20090806
  5. METFORMIN [Concomitant]
     Dosage: UNK, UNKNOWN
     Dates: start: 20090519, end: 20091119
  6. LASIX [Concomitant]
     Dosage: 40 MG, 2/D
  7. AMLODIPINE [Concomitant]
     Dosage: 200 MG, DAILY (1/D)
  8. LISINOPRIL [Concomitant]
     Dosage: 25 MG, DAILY (1/D)
  9. METOPROLOL TARTRATE [Concomitant]
     Dosage: 12.5 MG, 2/D

REACTIONS (5)
  - BLOOD ALBUMIN DECREASED [None]
  - BLOOD CREATININE INCREASED [None]
  - BLOOD UREA INCREASED [None]
  - CARDIAC FAILURE CONGESTIVE [None]
  - NEPHROPATHY TOXIC [None]
